FAERS Safety Report 6187414-7 (Version None)
Quarter: 2009Q2

REPORT INFORMATION
  Report Type: 
  Country: None (occurrence: None)
  Receive Date: 20090508
  Receipt Date: 20090430
  Transmission Date: 20091009
  Serious: Yes (Other)
  Sender: FDA-Public Use
  Company Number: 260313

PATIENT
  Age: 46 Year
  Sex: Male

DRUGS (1)
  1. DOBUTAMINE HCL [Suspect]
     Indication: STRESS ECHOCARDIOGRAM
     Dosage: 40 MCG/ KG/ MIN, INTRAVENOUS
     Route: 042

REACTIONS (1)
  - STRESS CARDIOMYOPATHY [None]
